FAERS Safety Report 19380735 (Version 1)
Quarter: 2021Q2

REPORT INFORMATION
  Report Type: Spontaneous
  Country: US (occurrence: US)
  Receive Date: 20210607
  Receipt Date: 20210607
  Transmission Date: 20210717
  Serious: No
  Sender: FDA-Public Use
  Company Number: US-BTGSP-US-BTGSP-21-0020

PATIENT
  Age: 63 Year
  Sex: Male
  Weight: 100 kg

DRUGS (4)
  1. VORAXAZE [Suspect]
     Active Substance: GLUCARPIDASE
     Indication: TOXICITY TO VARIOUS AGENTS
     Dosage: 5000 UNITS
     Route: 065
     Dates: start: 20210120
  2. METHOTREXATE. [Concomitant]
     Active Substance: METHOTREXATE
     Indication: PRODUCT USED FOR UNKNOWN INDICATION
     Dosage: UNK
     Route: 065
  3. METHOTREXATE. [Concomitant]
     Active Substance: METHOTREXATE
     Dosage: HIGH DOSE, 8 G/M2 (TOTAL 17G)
     Route: 065
     Dates: start: 20210119
  4. VORAXAZE [Suspect]
     Active Substance: GLUCARPIDASE
     Dosage: 5000 UNITS
     Route: 065
     Dates: start: 20210123

REACTIONS (3)
  - Drug level increased [Unknown]
  - Off label use [Unknown]
  - Laboratory test interference [Unknown]
